FAERS Safety Report 5446948-0 (Version None)
Quarter: 2007Q3

REPORT INFORMATION
  Report Type: 
  Country: None (occurrence: None)
  Receive Date: 20070907
  Receipt Date: 20070905
  Transmission Date: 20080115
  Serious: Yes (Hospitalization)
  Sender: FDA-Public Use
  Company Number: CH-MERCK-0709CHE00003

PATIENT
  Age: 82 Year
  Sex: Male

DRUGS (2)
  1. VYTORIN [Suspect]
     Route: 048
     Dates: start: 20060101
  2. ASPIRIN [Concomitant]
     Route: 048

REACTIONS (1)
  - CEREBROVASCULAR ACCIDENT [None]
